FAERS Safety Report 5318883-X (Version None)
Quarter: 2007Q1

REPORT INFORMATION
  Report Type: 
  Country: None (occurrence: None)
  Receive Date: 20070201
  Receipt Date: 20061227
  Transmission Date: 20070707
  Serious: No
  Sender: FDA-Public Use
  Company Number: VNL_0358_2006

PATIENT
  Age: 52 Year
  Sex: Male

DRUGS (5)
  1. APOKYN [Suspect]
     Indication: PARKINSON'S DISEASE
     Dosage: 0.4 ML, PRN; SC
     Route: 058
     Dates: start: 20061222
  2. APOKYN [Suspect]
     Indication: PARKINSON'S DISEASE
     Dosage: 0.3 ML ONCE; SC
     Route: 058
     Dates: start: 20061226
  3. TIGAN [Concomitant]
  4. SINEMET [Concomitant]
  5. ^BLOOD PRESSURE MEDICATION^ [Concomitant]

REACTIONS (4)
  - ASTHENIA [None]
  - DIZZINESS [None]
  - HYPERHIDROSIS [None]
  - NAUSEA [None]
